FAERS Safety Report 7470338-2 (Version None)
Quarter: 2011Q2

REPORT INFORMATION
  Report Type: 
  Country: None (occurrence: None)
  Receive Date: 20110510
  Receipt Date: 20110412
  Transmission Date: 20111010
  Serious: No
  Sender: FDA-Public Use
  Company Number: US-BAYER-2011-033336

PATIENT
  Sex: Female
  Weight: 73 kg

DRUGS (4)
  1. CHOLESTEROL- AND TRIGLYCERIDE REDUCERS [Concomitant]
  2. LIPITOR [Concomitant]
  3. ALEVE (CAPLET) [Suspect]
     Dosage: 2 DF, BID
     Route: 048
  4. ANTIHYPERTENSIVES [Concomitant]

REACTIONS (1)
  - NO ADVERSE EVENT [None]
